FAERS Safety Report 8488039-0 (Version None)
Quarter: 2012Q3

REPORT INFORMATION
  Report Type: 
  Country: None (occurrence: None)
  Receive Date: 20120705
  Receipt Date: 20120626
  Transmission Date: 20120928
  Serious: Yes (Other)
  Sender: FDA-Public Use
  Company Number: US-CELGENEUS-163-21880-12063550

PATIENT
  Sex: Male
  Weight: 83.99 kg

DRUGS (15)
  1. SIMVASTATIN [Concomitant]
     Route: 065
  2. OMEPRAZOLE [Concomitant]
     Route: 065
  3. SERTRALINE HYDROCHLORIDE [Concomitant]
     Route: 065
  4. VITAMIN D [Concomitant]
     Route: 065
  5. MIRTAZAPINE [Concomitant]
     Route: 065
  6. IMODIUM [Concomitant]
     Route: 065
  7. DEXAMETHASONE SODIUM PHOSPHATE [Concomitant]
     Route: 065
  8. LORAZEPAM [Concomitant]
     Route: 065
  9. SAW PALMETTO [Concomitant]
     Route: 065
  10. REVLIMID [Suspect]
     Indication: MULTIPLE MYELOMA
     Dosage: 25 MILLIGRAM
     Route: 048
     Dates: start: 20100610
  11. LEVETIRACETAM [Concomitant]
     Route: 065
  12. ASPIRIN [Concomitant]
     Route: 065
  13. DHA [Concomitant]
     Route: 065
  14. METOPROLOL SUCCINATE [Concomitant]
     Route: 065
  15. ROZEREM [Concomitant]
     Route: 065

REACTIONS (2)
  - MULTIPLE MYELOMA [None]
  - GLIOBLASTOMA [None]
